FAERS Safety Report 4742633-9 (Version None)
Quarter: 2005Q3

REPORT INFORMATION
  Report Type: 
  Country: None (occurrence: None)
  Receive Date: 20050810
  Receipt Date: 20050728
  Transmission Date: 20060218
  Serious: Yes (Other)
  Sender: FDA-Public Use
  Company Number: 2005108193

PATIENT
  Age: 34 Year
  Sex: Female
  Weight: 69.8539 kg

DRUGS (2)
  1. DRAMAMINE [Suspect]
     Indication: INSOMNIA
     Dosage: 1/2 TO ONE TABLET AS NEEDED, ORAL
     Route: 048
     Dates: start: 20050719, end: 20050726
  2. IRON (IRON) [Concomitant]

REACTIONS (4)
  - DIZZINESS [None]
  - DRUG DEPENDENCE [None]
  - NAUSEA [None]
  - SOMNOLENCE [None]
